FAERS Safety Report 18208832 (Version 3)
Quarter: 2021Q1

REPORT INFORMATION
  Report Type: Other
  Country: DE (occurrence: DE)
  Receive Date: 20200828
  Receipt Date: 20210315
  Transmission Date: 20210419
  Serious: Yes (Hospitalization)
  Sender: FDA-Public Use
  Company Number: DE-ROCHE-2667023

PATIENT
  Age: 5 Month
  Sex: Female
  Weight: 2.7 kg

DRUGS (4)
  1. OCRELIZUMAB. [Suspect]
     Active Substance: OCRELIZUMAB
     Dosage: SUBSEQUENT DOSE: 23/MAY/2019
     Route: 063
     Dates: start: 20181123, end: 20181123
  2. PARACETAMOL [Concomitant]
     Active Substance: ACETAMINOPHEN
     Dates: start: 20190727, end: 20190727
  3. CORTISON [Concomitant]
     Active Substance: CORTISONE ACETATE
     Dates: start: 20191206, end: 20191207
  4. OCRELIZUMAB. [Suspect]
     Active Substance: OCRELIZUMAB
     Indication: MULTIPLE SCLEROSIS
     Dosage: SUBSEQUENT DOSE: 23/MAY/2019
     Route: 064
     Dates: start: 20181123, end: 20181123

REACTIONS (4)
  - Exposure via breast milk [Unknown]
  - Neurodermatitis [Recovering/Resolving]
  - Foetal exposure during pregnancy [Unknown]
  - Haemangioma [Recovered/Resolved]

NARRATIVE: CASE EVENT DATE: 20200629
